FAERS Safety Report 26107506 (Version 1)
Quarter: 2025Q4

REPORT INFORMATION
  Report Type: Spontaneous
  Country: US (occurrence: None)
  Receive Date: 20251126
  Receipt Date: 20251126
  Transmission Date: 20260118
  Serious: No
  Sender: FDA-CTU
  Company Number: None

PATIENT
  Age: 74 Year
  Sex: Female

DRUGS (9)
  1. POMALYST [Suspect]
     Active Substance: POMALIDOMIDE
  2. CITALOPRAM 10MG TABLETS [Concomitant]
  3. CRESTOR 10MG TABLETS [Concomitant]
  4. RESTORIL 15MG CAPSULES [Concomitant]
  5. ZYRTEC 10MG TABLETS OTC [Concomitant]
  6. DEXAMETHASONE 4MG TABLETS [Concomitant]
  7. ACYCLOVIR 200MG CAPSULES [Concomitant]
  8. CITALOPRAM HYDROBROMIDE [Concomitant]
     Active Substance: CITALOPRAM HYDROBROMIDE
  9. LEVOTHYROXINE 0.075MG (75MCG) CAPS [Concomitant]
     Dosage: FREQUENCY : DAILY;?
     Route: 048
     Dates: start: 20251002

REACTIONS (1)
  - Neutrophil count abnormal [None]

NARRATIVE: CASE EVENT DATE: 20251124
